FAERS Safety Report 19987398 (Version 1)
Quarter: 2021Q4

REPORT INFORMATION
  Report Type: Spontaneous
  Country: CA (occurrence: CA)
  Receive Date: 20211022
  Receipt Date: 20211022
  Transmission Date: 20220303
  Serious: Yes (Other)
  Sender: FDA-Public Use
  Company Number: CA-NAPPMUNDI-GBR-2021-0091555

PATIENT
  Age: 71 Year
  Sex: Male

DRUGS (20)
  1. MORPHINE SULFATE [Suspect]
     Active Substance: MORPHINE SULFATE
     Indication: Back pain
     Dosage: UNK,
     Route: 065
  2. ESBRIET [Suspect]
     Active Substance: PIRFENIDONE
     Indication: Idiopathic pulmonary fibrosis
     Dosage: 2403.0 MG, UNK
     Route: 048
  3. ESBRIET [Suspect]
     Active Substance: PIRFENIDONE
     Dosage: 267.0 MG, TID
     Route: 048
  4. ESBRIET [Suspect]
     Active Substance: PIRFENIDONE
     Dosage: 1869.0 MG, UNK
     Route: 048
  5. ESBRIET [Suspect]
     Active Substance: PIRFENIDONE
     Dosage: 801.0 MG, TID
     Route: 048
  6. ESBRIET [Suspect]
     Active Substance: PIRFENIDONE
     Dosage: 801.0 MG, TID
     Route: 048
  7. ESBRIET [Suspect]
     Active Substance: PIRFENIDONE
     Dosage: 1869.0 MG, UNK
     Route: 048
  8. ESBRIET [Suspect]
     Active Substance: PIRFENIDONE
     Dosage: 1869.0 MG, UNK
     Route: 048
  9. ESBRIET [Suspect]
     Active Substance: PIRFENIDONE
     Dosage: 1602.0 MG, UNK
     Route: 048
  10. ESBRIET [Suspect]
     Active Substance: PIRFENIDONE
     Dosage: 1602 MG, UNK
     Route: 048
  11. ESBRIET [Suspect]
     Active Substance: PIRFENIDONE
     Dosage: 801.0 MG, BID
     Route: 048
  12. ESBRIET [Suspect]
     Active Substance: PIRFENIDONE
     Dosage: 53.0 MG, TID
     Route: 048
  13. CITALOPRAM [Concomitant]
     Active Substance: CITALOPRAM HYDROBROMIDE
     Dosage: UNK
  14. GLICLAZIDE [Concomitant]
     Active Substance: GLICLAZIDE
     Dosage: UNK
  15. ASPIRIN [Concomitant]
     Active Substance: ASPIRIN
     Dosage: UNK
  16. METFORMIN [Concomitant]
     Active Substance: METFORMIN HYDROCHLORIDE
     Dosage: UNK
  17. METOPROLOL [Concomitant]
     Active Substance: METOPROLOL
     Dosage: UNK
  18. PANTOPRAZOLE [Concomitant]
     Active Substance: PANTOPRAZOLE
     Dosage: UNK
  19. RAMIPRIL [Concomitant]
     Active Substance: RAMIPRIL
     Dosage: UNK
  20. ROSUVASTATIN [Concomitant]
     Active Substance: ROSUVASTATIN
     Dosage: UNK

REACTIONS (15)
  - Hypoacusis [Not Recovered/Not Resolved]
  - Abdominal discomfort [Not Recovered/Not Resolved]
  - Cough [Not Recovered/Not Resolved]
  - Diarrhoea [Not Recovered/Not Resolved]
  - Flatulence [Not Recovered/Not Resolved]
  - Muscle strain [Not Recovered/Not Resolved]
  - Pneumonia [Not Recovered/Not Resolved]
  - Pyrexia [Not Recovered/Not Resolved]
  - Weight decreased [Not Recovered/Not Resolved]
  - Fatigue [Not Recovered/Not Resolved]
  - Decreased appetite [Not Recovered/Not Resolved]
  - Constipation [Not Recovered/Not Resolved]
  - Nausea [Not Recovered/Not Resolved]
  - Vomiting [Not Recovered/Not Resolved]
  - Dyspepsia [Not Recovered/Not Resolved]
